FAERS Safety Report 7770895-2 (Version None)
Quarter: 2011Q3

REPORT INFORMATION
  Report Type: 
  Country: None (occurrence: None)
  Receive Date: 20110922
  Receipt Date: 20110223
  Transmission Date: 20111222
  Serious: Yes (Death, Hospitalization, Other)
  Sender: FDA-Public Use
  Company Number: US-ASTRAZENECA-2007UW24722

PATIENT
  Age: 500 Month
  Sex: Female
  Weight: 116.6 kg

DRUGS (33)
  1. SEROQUEL [Suspect]
     Dosage: 500 MG TO 700 MG
     Route: 048
     Dates: start: 20041201, end: 20050701
  2. CLONAZEPAM [Concomitant]
  3. ISONIAZID [Concomitant]
  4. DOXEPIN [Concomitant]
  5. RISPERDAL [Concomitant]
     Dates: start: 20050301, end: 20050801
  6. SEROQUEL [Suspect]
     Indication: BIPOLAR DISORDER
     Dosage: 100 - 200 MG
     Route: 048
     Dates: start: 20031026
  7. PROPRANOLOL [Concomitant]
  8. METHADONE HCL [Concomitant]
  9. MIRTAZAPINE [Concomitant]
  10. AMITRIPTYLINE HCL [Concomitant]
  11. HYDROXYZINE [Concomitant]
  12. NAPROXEN [Concomitant]
  13. SEROQUEL [Suspect]
     Dosage: 500 MG TO 700 MG
     Route: 048
     Dates: start: 20041201, end: 20050701
  14. DEPAKOTE [Concomitant]
     Dosage: 1500 MG TO 2000 MG
     Dates: start: 20050801, end: 20060501
  15. ACYCLOVIR [Concomitant]
  16. GLYBURIDE [Concomitant]
  17. MEDROXYPROGESTERONE [Concomitant]
  18. SEROQUEL [Suspect]
     Indication: POST-TRAUMATIC STRESS DISORDER
     Dosage: 100 - 200 MG
     Route: 048
     Dates: start: 20031026
  19. SEROQUEL [Suspect]
     Route: 048
     Dates: start: 20050801
  20. SEROQUEL [Suspect]
     Dosage: 700 MG TO 800 MG
     Route: 048
     Dates: start: 20050901, end: 20061101
  21. METFORMIN [Concomitant]
  22. SEROQUEL [Suspect]
     Route: 048
     Dates: start: 20050801
  23. LORAZEPAM [Concomitant]
  24. TOPAMAX [Concomitant]
  25. NIZORAL [Concomitant]
  26. FLUOXETINE HCL [Concomitant]
  27. TRAZODONE HYDROCHLORIDE [Concomitant]
  28. SEROQUEL [Suspect]
     Dosage: 700 MG TO 800 MG
     Route: 048
     Dates: start: 20050901, end: 20061101
  29. ABILIFY [Concomitant]
     Dosage: 5 MGTO 10 MG
     Dates: start: 20060601
  30. GEODON [Concomitant]
     Dates: start: 20060701
  31. DIAZEPAM [Concomitant]
  32. INDOMETHACIN [Concomitant]
  33. OXCARBAZEPINE [Concomitant]

REACTIONS (14)
  - SUICIDAL IDEATION [None]
  - CUSHING'S SYNDROME [None]
  - ROAD TRAFFIC ACCIDENT [None]
  - EAR INFECTION [None]
  - CONSTIPATION [None]
  - BACK INJURY [None]
  - WEIGHT INCREASED [None]
  - HEADACHE [None]
  - NECK INJURY [None]
  - BACK PAIN [None]
  - MUSCLE SPASMS [None]
  - SUICIDE ATTEMPT [None]
  - DIABETES MELLITUS [None]
  - PAIN [None]
